FAERS Safety Report 5951330-3 (Version None)
Quarter: 2008Q4

REPORT INFORMATION
  Report Type: 
  Country: None (occurrence: None)
  Receive Date: 20081022
  Receipt Date: 20080806
  Transmission Date: 20090506
  Serious: No
  Sender: FDA-Public Use
  Company Number: ALL1-2008-02212

PATIENT
  Sex: Female

DRUGS (2)
  1. VYVANSE [Suspect]
     Indication: OFF LABEL USE
     Dosage: 50 MG, ORAL
     Route: 048
  2. NARCOTICS [Concomitant]

REACTIONS (2)
  - INSOMNIA [None]
  - OFF LABEL USE [None]
